FAERS Safety Report 6519424-1 (Version None)
Quarter: 2009Q4

REPORT INFORMATION
  Report Type: 
  Country: None (occurrence: None)
  Receive Date: 20091228
  Receipt Date: 20091218
  Transmission Date: 20100525
  Serious: Yes (Other)
  Sender: FDA-Public Use
  Company Number: US-MERCK-0905USA04114

PATIENT
  Age: 53 Year
  Sex: Female

DRUGS (4)
  1. FOSAMAX [Suspect]
     Indication: OSTEOPENIA
     Route: 048
     Dates: start: 20010401, end: 20060601
  2. FOSAMAX [Suspect]
     Route: 048
     Dates: start: 19990801, end: 20010301
  3. FOSAMAX [Suspect]
     Indication: OSTEOPOROSIS
     Route: 048
     Dates: start: 20010401, end: 20060601
  4. FOSAMAX [Suspect]
     Route: 048
     Dates: start: 19990801, end: 20010301

REACTIONS (32)
  - ABSCESS [None]
  - ACTINIC KERATOSIS [None]
  - ADVERSE DRUG REACTION [None]
  - ALOPECIA [None]
  - ANAEMIA [None]
  - ANXIETY [None]
  - BONE DENSITY DECREASED [None]
  - CAROTID BRUIT [None]
  - DECREASED APPETITE [None]
  - DEPRESSION [None]
  - DYSPEPSIA [None]
  - ENDOMETRIAL ATROPHY [None]
  - GASTRITIS [None]
  - HYPERCALCAEMIA [None]
  - INFECTED CYST [None]
  - NAUSEA [None]
  - NODULE [None]
  - OESOPHAGITIS [None]
  - ORAL TORUS [None]
  - OSTEOMYELITIS [None]
  - OSTEONECROSIS [None]
  - PERIODONTAL DISEASE [None]
  - SKIN LESION [None]
  - STERNAL FRACTURE [None]
  - SYSTEMIC LUPUS ERYTHEMATOSUS [None]
  - TOOTH ABSCESS [None]
  - TOOTH DISCOLOURATION [None]
  - TOOTH INFECTION [None]
  - TREMOR [None]
  - VIRAL INFECTION [None]
  - VOMITING [None]
  - WEIGHT DECREASED [None]
